FAERS Safety Report 6088843-2 (Version None)
Quarter: 2009Q1

REPORT INFORMATION
  Report Type: 
  Country: None (occurrence: None)
  Receive Date: 20090224
  Receipt Date: 20090216
  Transmission Date: 20090719
  Serious: Yes (Hospitalization, Other)
  Sender: FDA-Public Use
  Company Number: SE-JNJCH-2009004801

PATIENT
  Age: 43 Year
  Sex: Male

DRUGS (1)
  1. ROGAINE [Suspect]
     Indication: ANDROGENETIC ALOPECIA
     Dosage: TEXT:1ML (50MG/ML) TWICE DAILY
     Route: 061
     Dates: start: 20000101, end: 20081024

REACTIONS (2)
  - CARDIAC FAILURE [None]
  - MYOCARDIAL INFARCTION [None]
